FAERS Safety Report 18886153 (Version 26)
Quarter: 2025Q1

REPORT INFORMATION
  Report Type: Report from Study
  Country: US (occurrence: US)
  Receive Date: 20210212
  Receipt Date: 20250304
  Transmission Date: 20250409
  Serious: Yes (Hospitalization, Other)
  Sender: TAKEDA
  Company Number: US-KAMADA LIMITED-2021US001022

PATIENT
  Age: 63 Year
  Sex: Female
  Weight: 105 kg

DRUGS (89)
  1. GLASSIA [Suspect]
     Active Substance: .ALPHA.1-PROTEINASE INHIBITOR HUMAN
     Indication: Alpha-1 antitrypsin deficiency
     Dosage: UNK UNK, 1/WEEK
     Dates: start: 20120710
  2. GLASSIA [Suspect]
     Active Substance: .ALPHA.1-PROTEINASE INHIBITOR HUMAN
     Dosage: UNK UNK, 1/WEEK
     Dates: start: 20120712
  3. GLASSIA [Suspect]
     Active Substance: .ALPHA.1-PROTEINASE INHIBITOR HUMAN
     Dosage: UNK UNK, 1/WEEK
     Dates: start: 20220505
  4. GLASSIA [Suspect]
     Active Substance: .ALPHA.1-PROTEINASE INHIBITOR HUMAN
     Dosage: 60 MILLIGRAM/KILOGRAM, 1/WEEK
  5. CIPRO [Concomitant]
     Active Substance: CIPROFLOXACIN HYDROCHLORIDE
  6. TRADJENTA [Concomitant]
     Active Substance: LINAGLIPTIN
  7. DICYCLOMINE [Concomitant]
     Active Substance: DICYCLOMINE HYDROCHLORIDE
  8. BUTALBITAL, ACETAMINOPHEN, AND CAFFEINE [Concomitant]
     Active Substance: ACETAMINOPHEN\BUTALBITAL\CAFFEINE
  9. FUROSEMIDE [Concomitant]
     Active Substance: FUROSEMIDE
  10. DIPHENHYDRAMINE HYDROCHLORIDE [Concomitant]
     Active Substance: DIPHENHYDRAMINE HYDROCHLORIDE
  11. HEPARIN [Concomitant]
     Active Substance: HEPARIN SODIUM
  12. LIDOCAINE [Concomitant]
     Active Substance: LIDOCAINE
  13. SODIUM CHLORIDE [Concomitant]
     Active Substance: SODIUM CHLORIDE
  14. GLIPIZIDE [Concomitant]
     Active Substance: GLIPIZIDE
  15. EPINEPHRINE [Concomitant]
     Active Substance: EPINEPHRINE
  16. OMEPRAZOLE [Concomitant]
     Active Substance: OMEPRAZOLE
  17. PANTOPRAZOLE SODIUM [Concomitant]
     Active Substance: PANTOPRAZOLE SODIUM
  18. PREMARIN [Concomitant]
     Active Substance: ESTROGENS, CONJUGATED
  19. DULOXETINE HYDROCHLORIDE [Concomitant]
     Active Substance: DULOXETINE HYDROCHLORIDE
  20. HYDROXYZINE [Concomitant]
     Active Substance: HYDROXYZINE HYDROCHLORIDE
  21. DESVENLAFAXINE [Concomitant]
     Active Substance: DESVENLAFAXINE
  22. PIOGLITAZONE [Concomitant]
     Active Substance: PIOGLITAZONE
  23. QUETIAPINE [Concomitant]
     Active Substance: QUETIAPINE
  24. FAMOTIDINE [Concomitant]
     Active Substance: FAMOTIDINE
  25. DIAZEPAM [Concomitant]
     Active Substance: DIAZEPAM
  26. LINZESS [Concomitant]
     Active Substance: LINACLOTIDE
  27. BREO ELLIPTA [Concomitant]
     Active Substance: FLUTICASONE FUROATE\VILANTEROL TRIFENATATE
  28. METFORMIN HYDROCHLORIDE [Concomitant]
     Active Substance: METFORMIN HYDROCHLORIDE
  29. PSEUDOEPHEDRINE [Concomitant]
     Active Substance: PSEUDOEPHEDRINE
  30. ELIQUIS [Concomitant]
     Active Substance: APIXABAN
  31. CYCLOBENZAPRINE HYDROCHLORIDE [Concomitant]
     Active Substance: CYCLOBENZAPRINE HYDROCHLORIDE
  32. METOPROLOL TARTRATE [Concomitant]
     Active Substance: METOPROLOL TARTRATE
  33. STIOLTO RESPIMAT [Concomitant]
     Active Substance: OLODATEROL HYDROCHLORIDE\TIOTROPIUM BROMIDE MONOHYDRATE
  34. OXYGEN [Concomitant]
     Active Substance: OXYGEN
  35. LIOTHYRONINE SODIUM [Concomitant]
     Active Substance: LIOTHYRONINE SODIUM
  36. ASPIRIN [Concomitant]
     Active Substance: ASPIRIN
  37. LEVOTHYROXINE SODIUM [Concomitant]
     Active Substance: LEVOTHYROXINE SODIUM
  38. BUSPIRONE HCL [Concomitant]
     Active Substance: BUSPIRONE HYDROCHLORIDE
  39. PROPRANOLOL [Concomitant]
     Active Substance: PROPRANOLOL HYDROCHLORIDE
  40. TRESIBA [Concomitant]
     Active Substance: INSULIN DEGLUDEC
  41. CIPROFLOXACIN HYDROCHLORIDE [Concomitant]
     Active Substance: CIPROFLOXACIN HYDROCHLORIDE
  42. METRONIDAZOLE [Concomitant]
     Active Substance: METRONIDAZOLE
  43. PREDNISONE [Concomitant]
     Active Substance: PREDNISONE
  44. NITROGLYCERIN [Concomitant]
     Active Substance: NITROGLYCERIN
  45. NOVOLOG [Concomitant]
     Active Substance: INSULIN ASPART
  46. ACETAMINOPHEN [Concomitant]
     Active Substance: ACETAMINOPHEN
  47. BROMPHENIRAMINE\PSEUDOEPHEDRINE [Concomitant]
     Active Substance: BROMPHENIRAMINE\PSEUDOEPHEDRINE
  48. BACLOFEN [Concomitant]
     Active Substance: BACLOFEN
  49. FISH OIL [Concomitant]
     Active Substance: FISH OIL
     Indication: Product used for unknown indication
  50. VITAMIN D [Concomitant]
     Active Substance: VITAMIN D NOS
     Indication: Product used for unknown indication
  51. METOPROLOL [Concomitant]
     Active Substance: METOPROLOL
     Indication: Product used for unknown indication
  52. METFORMIN [Concomitant]
     Active Substance: METFORMIN HYDROCHLORIDE
     Indication: Product used for unknown indication
  53. BUSPIRONE [Concomitant]
     Active Substance: BUSPIRONE HYDROCHLORIDE
     Indication: Product used for unknown indication
  54. DULOXETINE [Concomitant]
     Active Substance: DULOXETINE
     Indication: Product used for unknown indication
  55. LEVOTHYROXINE [Concomitant]
     Active Substance: LEVOTHYROXINE
     Indication: Product used for unknown indication
  56. LIOTHYRONINE [Concomitant]
     Active Substance: LIOTHYRONINE
     Indication: Product used for unknown indication
  57. AMOXICILLIN [Concomitant]
     Active Substance: AMOXICILLIN
  58. DESVENLAFAXINE SUCCINATE [Concomitant]
     Active Substance: DESVENLAFAXINE SUCCINATE
  59. QUETIAPINE FUMARATE [Concomitant]
     Active Substance: QUETIAPINE FUMARATE
  60. ESCITALOPRAM OXALATE [Concomitant]
     Active Substance: ESCITALOPRAM OXALATE
  61. NYSTATIN [Concomitant]
     Active Substance: NYSTATIN
  62. PANTOPRAZOLE [Concomitant]
     Active Substance: PANTOPRAZOLE
  63. BROMPHENIRAMINE\DEXTROMETHORPHAN\PSEUDOEPHEDRINE [Concomitant]
     Active Substance: BROMPHENIRAMINE\DEXTROMETHORPHAN\PSEUDOEPHEDRINE
  64. GABAPENTIN [Concomitant]
     Active Substance: GABAPENTIN
  65. TIZANIDINE [Concomitant]
     Active Substance: TIZANIDINE
  66. ACYCLOVIR [Concomitant]
     Active Substance: ACYCLOVIR
  67. FERROUS GLUCONATE [Concomitant]
     Active Substance: FERROUS GLUCONATE
  68. YUVAFEM [Concomitant]
     Active Substance: ESTRADIOL HEMIHYDRATE
  69. ESOMEPRAZOLE MAGNESIUM [Concomitant]
     Active Substance: ESOMEPRAZOLE MAGNESIUM
  70. ARIPIPRAZOLE [Concomitant]
     Active Substance: ARIPIPRAZOLE
  71. EZETIMIBE [Concomitant]
     Active Substance: EZETIMIBE
  72. LANSOPRAZOLE [Concomitant]
     Active Substance: LANSOPRAZOLE
  73. ZITHROMAX [Concomitant]
     Active Substance: AZITHROMYCIN DIHYDRATE
  74. FERROUS SULFATE [Concomitant]
     Active Substance: FERROUS SULFATE
  75. OZEMPIC [Concomitant]
     Active Substance: SEMAGLUTIDE
  76. VRAYLAR [Concomitant]
     Active Substance: CARIPRAZINE
  77. SPIRIVA RESPIMAT [Concomitant]
     Active Substance: TIOTROPIUM BROMIDE
  78. ACETAMINOPHEN\HYDROCODONE [Concomitant]
     Active Substance: ACETAMINOPHEN\HYDROCODONE
  79. VITAMINS [Concomitant]
     Active Substance: VITAMINS
  80. METHOCARBAMOL [Concomitant]
     Active Substance: METHOCARBAMOL
  81. ROFLUMILAST [Concomitant]
     Active Substance: ROFLUMILAST
  82. ZEPBOUND [Concomitant]
     Active Substance: TIRZEPATIDE
  83. TRAMADOL HCL [Concomitant]
     Active Substance: TRAMADOL HYDROCHLORIDE
  84. DULCOLAX STOOL SOFTENER [Concomitant]
     Active Substance: DOCUSATE SODIUM
  85. ASPIRIN [Concomitant]
     Active Substance: ASPIRIN
  86. PREGABALIN [Concomitant]
     Active Substance: PREGABALIN
  87. LISDEXAMFETAMINE DIMESYLATE [Concomitant]
     Active Substance: LISDEXAMFETAMINE DIMESYLATE
  88. METOPROLOL SUCCINATE [Concomitant]
     Active Substance: METOPROLOL SUCCINATE
  89. TRAZODONE HCL [Concomitant]
     Active Substance: TRAZODONE HYDROCHLORIDE

REACTIONS (27)
  - Diverticulitis [Unknown]
  - Pulmonary embolism [Unknown]
  - Pulmonary mass [Unknown]
  - Haemoglobin decreased [Unknown]
  - Abdominal pain upper [Unknown]
  - Intestinal obstruction [Unknown]
  - Sepsis [Unknown]
  - COVID-19 [Unknown]
  - Blood culture positive [Recovered/Resolved]
  - Urinary tract infection [Unknown]
  - Pneumonia [Unknown]
  - Cardiac failure [Unknown]
  - Lung adenocarcinoma [Unknown]
  - Chest pain [Unknown]
  - Chronic obstructive pulmonary disease [Unknown]
  - Dyspnoea [Unknown]
  - Nasopharyngitis [Unknown]
  - Insurance issue [Unknown]
  - Seasonal allergy [Unknown]
  - Device issue [Unknown]
  - Product dose omission issue [Unknown]
  - Influenza [Unknown]
  - Gastroenteritis viral [Unknown]
  - Myalgia [Unknown]
  - Sinusitis [Unknown]
  - Headache [Unknown]
  - Nausea [Unknown]

NARRATIVE: CASE EVENT DATE: 20230907
